FAERS Safety Report 9323786 (Version 4)
Quarter: 2013Q4

REPORT INFORMATION
  Report Type: Spontaneous
  Country: JP (occurrence: JP)
  Receive Date: 20130603
  Receipt Date: 20131003
  Transmission Date: 20140711
  Serious: Yes (Life-Threatening, Hospitalization, Other)
  Sender: FDA-Public Use
  Company Number: JP-JNJFOC-20130519106

PATIENT
  Age: 45 Year
  Sex: Male
  Weight: 55 kg

DRUGS (38)
  1. REMICADE [Suspect]
     Indication: PUSTULAR PSORIASIS
     Route: 042
     Dates: start: 20120423
  2. REMICADE [Suspect]
     Indication: PUSTULAR PSORIASIS
     Route: 042
     Dates: start: 20120326
  3. REMICADE [Suspect]
     Indication: PUSTULAR PSORIASIS
     Route: 042
     Dates: start: 20120312
  4. PREDONINE [Suspect]
     Indication: PUSTULAR PSORIASIS
     Dosage: INITIAL DOSE OF 1MG/KG
     Route: 048
     Dates: start: 199108
  5. PREDONINE [Suspect]
     Indication: PUSTULAR PSORIASIS
     Route: 048
     Dates: start: 2012
  6. PREDONINE [Suspect]
     Indication: PUSTULAR PSORIASIS
     Dosage: 5-20 MG
     Route: 048
     Dates: start: 20120526
  7. PREDONINE [Suspect]
     Indication: PUSTULAR PSORIASIS
     Dosage: 60 TO 70 MG PER DAY
     Route: 048
  8. PREDONINE [Suspect]
     Indication: PUSTULAR PSORIASIS
     Route: 048
  9. HUMIRA [Suspect]
     Indication: PUSTULAR PSORIASIS
     Route: 058
     Dates: start: 20120706
  10. HUMIRA [Suspect]
     Indication: PUSTULAR PSORIASIS
     Route: 058
     Dates: start: 20120803
  11. HUMIRA [Suspect]
     Indication: PUSTULAR PSORIASIS
     Route: 058
     Dates: start: 20120720
  12. HUMIRA [Suspect]
     Indication: PUSTULAR PSORIASIS
     Route: 058
     Dates: start: 20120622
  13. UNKNOWN ADRENAL HORMONE PREPARATIONS [Suspect]
     Indication: DERMATITIS EXFOLIATIVE
     Route: 065
  14. TIGASON [Concomitant]
     Indication: PUSTULAR PSORIASIS
     Route: 048
     Dates: start: 200812
  15. TIGASON [Concomitant]
     Indication: PUSTULAR PSORIASIS
     Route: 048
     Dates: start: 200101
  16. TIGASON [Concomitant]
     Indication: PUSTULAR PSORIASIS
     Route: 048
     Dates: start: 1986
  17. TIGASON [Concomitant]
     Indication: PUSTULAR PSORIASIS
     Route: 048
     Dates: start: 20120601
  18. COLCHICINE [Concomitant]
     Indication: PUSTULAR PSORIASIS
     Route: 048
     Dates: start: 1986
  19. LECTISOL [Concomitant]
     Route: 048
     Dates: start: 199108
  20. METHOTREXATE [Concomitant]
     Route: 065
     Dates: start: 199108
  21. NEORAL [Concomitant]
     Route: 048
     Dates: start: 20120128
  22. NEORAL [Concomitant]
     Route: 048
     Dates: start: 20120529
  23. NEORAL [Concomitant]
     Route: 048
     Dates: start: 200007
  24. NEORAL [Concomitant]
     Dosage: 150-200 MG/DAY
     Route: 048
  25. NEORAL [Concomitant]
     Route: 048
     Dates: start: 20120619
  26. NEORAL [Concomitant]
     Route: 048
     Dates: start: 200812
  27. NEORAL [Concomitant]
     Route: 048
     Dates: start: 200101
  28. EKSALB [Concomitant]
     Route: 065
     Dates: start: 200812
  29. ZOSYN [Concomitant]
     Route: 065
     Dates: start: 20120128
  30. CORTRIL [Concomitant]
     Route: 048
     Dates: start: 20120313, end: 20120410
  31. ALESION [Concomitant]
     Route: 048
     Dates: start: 20120525
  32. SAXIZON [Concomitant]
     Route: 065
     Dates: start: 20120529
  33. HUMAN SERUM ALBUMIN [Concomitant]
     Route: 065
     Dates: start: 20120529
  34. PARIET [Concomitant]
     Route: 048
     Dates: start: 20120619
  35. BONALFA [Concomitant]
     Route: 065
     Dates: start: 20120619
  36. ANTEBATE [Concomitant]
     Route: 065
     Dates: start: 20120619
  37. MAXIPIME [Concomitant]
     Route: 065
  38. FUNGUARD [Concomitant]
     Route: 065

REACTIONS (4)
  - Disseminated tuberculosis [Unknown]
  - Pustular psoriasis [Recovering/Resolving]
  - Dermatitis exfoliative [Recovering/Resolving]
  - Drug resistance [Unknown]
